FAERS Safety Report 8431563-7 (Version None)
Quarter: 2012Q2

REPORT INFORMATION
  Report Type: 
  Country: None (occurrence: None)
  Receive Date: 20120607
  Receipt Date: 20120607
  Transmission Date: 20120825
  Serious: Yes (Disabling, Other)
  Sender: FDA-Public Use
  Company Number: None

PATIENT
  Age: 73 Year
  Sex: Female
  Weight: 40.8237 kg

DRUGS (1)
  1. RECLAST [Suspect]
     Indication: OSTEOPOROSIS
     Dosage: ? REGULAR DOSE 1 TIME IV (ARM)
     Route: 042
     Dates: start: 20120413

REACTIONS (3)
  - GAIT DISTURBANCE [None]
  - WEIGHT DECREASED [None]
  - BONE PAIN [None]
